FAERS Safety Report 12783174 (Version 1)
Quarter: 2016Q3

REPORT INFORMATION
  Report Type: Spontaneous
  Country: US (occurrence: US)
  Receive Date: 20160926
  Receipt Date: 20160926
  Transmission Date: 20161109
  Serious: Yes (Hospitalization)
  Sender: FDA-Public Use
  Company Number: None

PATIENT
  Age: 25 Year
  Sex: Female
  Weight: 87.75 kg

DRUGS (13)
  1. HYOSCAMINE SULFATE 0.125 MG TAB [Suspect]
     Active Substance: HYOSCYAMINE SULFATE
     Indication: DIARRHOEA
     Route: 048
     Dates: start: 20150926, end: 20160926
  2. TRAZODONE [Concomitant]
     Active Substance: TRAZODONE HYDROCHLORIDE
  3. ORTHO CYCLEN [Concomitant]
     Active Substance: ETHINYL ESTRADIOL\NORGESTIMATE
  4. VITAMIN B12 [Concomitant]
     Active Substance: CYANOCOBALAMIN
  5. TYLENOL [Concomitant]
     Active Substance: ACETAMINOPHEN
  6. LEXAPRO [Concomitant]
     Active Substance: ESCITALOPRAM OXALATE
  7. NEURONTIN [Concomitant]
     Active Substance: GABAPENTIN
  8. ADVIL [Concomitant]
     Active Substance: IBUPROFEN
  9. CORLANOR [Concomitant]
     Active Substance: IVABRADINE HYDROCHLORIDE
  10. FLUDROCORTISONE [Concomitant]
     Active Substance: FLUDROCORTISONE
  11. MEDTRONIC REVEAL LINQ HEART MONITOR [Concomitant]
  12. ANGIO DYNAMIC SMART POWER INJECTABLE PORT [Concomitant]
  13. ATENOLOL. [Concomitant]
     Active Substance: ATENOLOL

REACTIONS (2)
  - Facial paralysis [None]
  - Hypoaesthesia [None]

NARRATIVE: CASE EVENT DATE: 20160529
